FAERS Safety Report 24776284 (Version 1)
Quarter: 2024Q4

REPORT INFORMATION
  Report Type: Spontaneous
  Country: CN (occurrence: CN)
  Receive Date: 20241226
  Receipt Date: 20241226
  Transmission Date: 20250115
  Serious: Yes (Hospitalization)
  Sender: STRIDES
  Company Number: CN-STRIDES ARCOLAB LIMITED-2024SP016946

PATIENT
  Age: 70 Year
  Sex: Female

DRUGS (13)
  1. TACROLIMUS [Suspect]
     Active Substance: TACROLIMUS
     Indication: Myasthenia gravis
     Dosage: UNK
     Route: 065
     Dates: start: 202304
  2. PREDNISOLONE [Suspect]
     Active Substance: PREDNISOLONE
     Indication: Myasthenia gravis
     Dosage: UNK
     Route: 065
     Dates: start: 202304
  3. PREDNISOLONE [Suspect]
     Active Substance: PREDNISOLONE
     Dosage: UNK, DOSE REDUCED
     Route: 065
     Dates: start: 2024
  4. MYCOPHENOLATE MOFETIL [Suspect]
     Active Substance: MYCOPHENOLATE MOFETIL
     Indication: Myasthenia gravis
     Dosage: 1 GRAM, QD
     Route: 065
     Dates: start: 202306
  5. MYCOPHENOLATE MOFETIL [Suspect]
     Active Substance: MYCOPHENOLATE MOFETIL
     Dosage: UNK, DOSE REDUCED
     Route: 065
     Dates: start: 2024
  6. PYRIDOSTIGMINE [Suspect]
     Active Substance: PYRIDOSTIGMINE
     Indication: Myasthenia gravis
     Dosage: UNK
     Route: 065
     Dates: start: 202304, end: 2023
  7. PYRIDOSTIGMINE [Suspect]
     Active Substance: PYRIDOSTIGMINE
     Dosage: 90 MILLIGRAM, QD
     Route: 065
     Dates: start: 202306, end: 2023
  8. METHYLPREDNISOLONE [Suspect]
     Active Substance: METHYLPREDNISOLONE
     Indication: Myasthenia gravis
     Dosage: 1000 MILLIGRAM, QD
     Route: 042
     Dates: start: 2023, end: 2023
  9. EFGARTIGIMOD ALFA [Suspect]
     Active Substance: EFGARTIGIMOD ALFA
     Indication: Myasthenia gravis
     Dosage: UNK
     Route: 065
     Dates: start: 202401
  10. IMMUNE GLOBULIN NOS [Suspect]
     Active Substance: IMMUNE GLOBULIN NOS
     Indication: Myasthenia gravis
     Dosage: UNK
     Route: 042
     Dates: start: 202401
  11. TELITACICEPT [Suspect]
     Active Substance: TELITACICEPT
     Indication: Myasthenia gravis
     Dosage: 160 MILLIGRAM/WEEK (RECEIVED 8 INJECTIONS)
     Route: 058
     Dates: start: 202307
  12. TELITACICEPT [Suspect]
     Active Substance: TELITACICEPT
     Dosage: UNK
     Route: 058
     Dates: start: 202404
  13. RITUXIMAB [Suspect]
     Active Substance: RITUXIMAB
     Indication: Myasthenia gravis
     Dosage: 375 MILLIGRAM/SQ. METER
     Route: 065
     Dates: start: 2024

REACTIONS (6)
  - Gastrointestinal disorder [Unknown]
  - Disease progression [Recovered/Resolved]
  - Herpes zoster [Recovered/Resolved]
  - Therapy non-responder [Unknown]
  - Therapy partial responder [Unknown]
  - Off label use [Unknown]

NARRATIVE: CASE EVENT DATE: 20230101
